FAERS Safety Report 7971959-0 (Version None)
Quarter: 2011Q4

REPORT INFORMATION
  Report Type: 
  Country: None (occurrence: None)
  Receive Date: 20111212
  Receipt Date: 20111201
  Transmission Date: 20120403
  Serious: Yes (Other)
  Sender: FDA-Public Use
  Company Number: US-ASTRAZENECA-2011SE73090

PATIENT
  Sex: Female

DRUGS (5)
  1. ALBUTEROL [Concomitant]
  2. NEXIUM [Concomitant]
  3. RHINOCORT [Suspect]
     Route: 045
  4. PULMICORT [Concomitant]
  5. LOVASTATIN [Concomitant]

REACTIONS (2)
  - HAEMORRHAGE [None]
  - DRUG HYPERSENSITIVITY [None]
